FAERS Safety Report 18354577 (Version 1)
Quarter: 2020Q4

REPORT INFORMATION
  Report Type: Spontaneous
  Country: US (occurrence: US)
  Receive Date: 20201007
  Receipt Date: 20201007
  Transmission Date: 20210114
  Serious: No
  Sender: FDA-Public Use
  Company Number: US-BION-008305

PATIENT
  Sex: Female

DRUGS (1)
  1. BIONPHARMA^S PROGESTERONE CAPSULE 200 MG [Suspect]
     Active Substance: PROGESTERONE
     Indication: PRODUCT USED FOR UNKNOWN INDICATION
     Dosage: STRENGTH: 200 MG, DURATION MORE THAN 2 WEEKS

REACTIONS (5)
  - Sleep disorder [Recovering/Resolving]
  - Headache [Recovering/Resolving]
  - Diarrhoea [Recovering/Resolving]
  - Irritability [Recovering/Resolving]
  - Breast tenderness [Recovering/Resolving]
